FAERS Safety Report 7731761-1 (Version None)
Quarter: 2011Q3

REPORT INFORMATION
  Report Type: 
  Country: None (occurrence: None)
  Receive Date: 20110906
  Receipt Date: 20110825
  Transmission Date: 20111222
  Serious: Yes (Other)
  Sender: FDA-Public Use
  Company Number: PHHY2011FR76719

PATIENT
  Sex: Male

DRUGS (3)
  1. GLEEVEC [Suspect]
     Dosage: 600 MG, UNK
  2. GLEEVEC [Suspect]
     Dosage: 400 MG, UNK
  3. SPRYCEL [Concomitant]
     Dosage: UNK UKN, UNK

REACTIONS (3)
  - LUMBAR SPINAL STENOSIS [None]
  - AXONAL NEUROPATHY [None]
  - DRUG INEFFECTIVE [None]
